FAERS Safety Report 9776737 (Version 8)
Quarter: 2014Q3

REPORT INFORMATION
  Report Type: Report from Study
  Country: HK (occurrence: HK)
  Receive Date: 20131220
  Receipt Date: 20140909
  Transmission Date: 20150326
  Serious: Yes (Hospitalization)
  Sender: FDA-Public Use
  Company Number: HK-009507513-1312HKG007361

PATIENT
  Age: 64 Year
  Sex: Female
  Weight: 57.9 kg

DRUGS (30)
  1. BOCEPREVIR [Suspect]
     Active Substance: BOCEPREVIR
     Dosage: 800 MG, AFTERNOON
     Route: 048
     Dates: start: 20131128, end: 20131211
  2. RIBAVIRIN. [Suspect]
     Active Substance: RIBAVIRIN
     Indication: CHRONIC HEPATITIS C
     Dosage: 3 CAPSULES, ONCE
     Route: 048
     Dates: start: 20131030, end: 20131030
  3. RIBAVIRIN. [Suspect]
     Active Substance: RIBAVIRIN
     Dosage: 1 CAPSULE, QAM
     Route: 048
     Dates: start: 20131224, end: 20140109
  4. NORVASC [Concomitant]
     Active Substance: AMLODIPINE BESYLATE
     Indication: INSOMNIA
     Dosage: DAILY DOSAGE: 2.5 MG, QD
     Route: 048
     Dates: start: 20131113, end: 20140304
  5. RIBAVIRIN. [Suspect]
     Active Substance: RIBAVIRIN
     Dosage: 2 CAPSULES, QPM
     Route: 048
     Dates: start: 20131210, end: 20131210
  6. AQUEOUS CREAM [Concomitant]
     Indication: ORAL MUCOSAL EXFOLIATION
     Dosage: UNK, TID
     Route: 061
     Dates: start: 20131202
  7. BOCEPREVIR [Suspect]
     Active Substance: BOCEPREVIR
     Dosage: 800 MG, QPM
     Route: 048
     Dates: start: 20131127, end: 20131210
  8. RIBAVIRIN. [Suspect]
     Active Substance: RIBAVIRIN
     Dosage: 2CAPSULES, QAM
     Route: 048
     Dates: start: 20131031, end: 20131127
  9. RIBAVIRIN. [Suspect]
     Active Substance: RIBAVIRIN
     Dosage: 1 CAPSULE, QAM
     Route: 048
     Dates: start: 20131210, end: 20131210
  10. EPOETIN BETA [Concomitant]
     Active Substance: ERYTHROPOIETIN
     Indication: ANAEMIA
     Dosage: TOTAL DAILY 5000 IU; QW
     Route: 058
     Dates: start: 20131202, end: 20140119
  11. HYPROMELLOSE [Concomitant]
     Active Substance: HYPROMELLOSES
     Indication: VOMITING
  12. BOCEPREVIR [Suspect]
     Active Substance: BOCEPREVIR
     Indication: CHRONIC HEPATITIS C
     Dosage: 800 MG, ONCE
     Route: 048
     Dates: start: 20131127, end: 20131127
  13. BOCEPREVIR [Suspect]
     Active Substance: BOCEPREVIR
     Dosage: 800 MG, ONCE
     Route: 048
     Dates: start: 20131224, end: 20131224
  14. RIBAVIRIN. [Suspect]
     Active Substance: RIBAVIRIN
     Dosage: 1 CAPSULE, QPM
     Route: 048
     Dates: start: 20131209, end: 20131209
  15. RIBAVIRIN. [Suspect]
     Active Substance: RIBAVIRIN
     Dosage: 2 DF, ONCE
     Route: 048
     Dates: start: 20140109, end: 20140109
  16. ENERVON C [Concomitant]
     Indication: NUTRITIONAL SUPPLEMENTATION
     Dosage: DAILY DOSAGE:5 ML, QD
     Route: 048
     Dates: start: 20131202, end: 20131222
  17. ACTIFED (PSEUDOEPHEDRINE HYDROCHLORIDE (+) TRIPROLIDINE HYDROCHLORIDE) [Concomitant]
     Indication: RESPIRATORY DISORDER
     Dosage: DAILY DOSAGE:10 ML , TID
     Route: 048
     Dates: start: 20131202, end: 20131209
  18. BOCEPREVIR [Suspect]
     Active Substance: BOCEPREVIR
     Dosage: 800 MG, QPM
     Route: 048
     Dates: start: 20131223, end: 20131223
  19. RIBAVIRIN. [Suspect]
     Active Substance: RIBAVIRIN
     Dosage: 3 CAPSULES, QPM
     Route: 048
     Dates: start: 20131031, end: 20131128
  20. RIBAVIRIN. [Suspect]
     Active Substance: RIBAVIRIN
     Dosage: 1 CAPSULE, QAM
     Route: 048
     Dates: start: 20131216, end: 20140108
  21. PEGINTERFERON ALFA-2A [Suspect]
     Active Substance: PEGINTERFERON ALFA-2A
     Indication: CHRONIC HEPATITIS C
     Dosage: 180 MICROGRAM, QW
     Route: 058
     Dates: start: 20131218, end: 20140101
  22. RIBAVIRIN. [Suspect]
     Active Substance: RIBAVIRIN
     Dosage: 1 CAPSULE, QAM
     Route: 048
     Dates: start: 20131130, end: 20131202
  23. RIBAVIRIN. [Suspect]
     Active Substance: RIBAVIRIN
     Dosage: 2 TABLETS, QAM
     Route: 048
     Dates: start: 20131203, end: 20131209
  24. RIBAVIRIN. [Suspect]
     Active Substance: RIBAVIRIN
     Dosage: 1 CAPSULE, QPM
     Route: 048
     Dates: start: 20131129, end: 20131129
  25. RIBAVIRIN. [Suspect]
     Active Substance: RIBAVIRIN
     Dosage: 2 CAPSULES, QPM
     Route: 048
     Dates: start: 20131130, end: 20131208
  26. PEGINTERFERON ALFA-2A [Suspect]
     Active Substance: PEGINTERFERON ALFA-2A
     Dosage: 180 MICROGRAM, QW
     Route: 058
     Dates: start: 20131218, end: 20140101
  27. HYPROMELLOSE [Concomitant]
     Active Substance: HYPROMELLOSES
     Indication: DIZZINESS
     Dosage: DAILY DOSAGE:3, TID
     Route: 047
     Dates: start: 20120924, end: 20140126
  28. BOCEPREVIR [Suspect]
     Active Substance: BOCEPREVIR
     Dosage: 800 MG, QAM
     Route: 048
     Dates: start: 20131128, end: 20131211
  29. BOCEPREVIR [Suspect]
     Active Substance: BOCEPREVIR
     Dosage: 800 MG, AFTERNOON
     Route: 047
     Dates: start: 20131223, end: 20131223
  30. RIBAVIRIN. [Suspect]
     Active Substance: RIBAVIRIN
     Dosage: 2 CAPSULES, QPM
     Route: 048
     Dates: start: 20131216, end: 20131222

REACTIONS (4)
  - Dizziness [Recovered/Resolved]
  - Dizziness [Recovered/Resolved]
  - Vomiting [Recovered/Resolved]
  - Vomiting [Recovered/Resolved]

NARRATIVE: CASE EVENT DATE: 20131211
